FAERS Safety Report 4647404-X (Version None)
Quarter: 2005Q2

REPORT INFORMATION
  Report Type: 
  Country: None (occurrence: None)
  Receive Date: 20050426
  Receipt Date: 20050411
  Transmission Date: 20051028
  Serious: Yes (Hospitalization, Disabling)
  Sender: FDA-Public Use
  Company Number: 2005EU000290

PATIENT
  Age: 2 Year
  Sex: Male

DRUGS (2)
  1. PROTOPIC [Suspect]
     Indication: DERMATITIS ATOPIC
     Dosage: 0.03%, BID, TOPICAL
     Route: 061
     Dates: start: 20041001, end: 20041102
  2. PROTOPIC [Suspect]
     Indication: DERMATITIS ATOPIC
     Dosage: 0.03%, BID, TOPICAL
     Route: 061
     Dates: start: 20041110, end: 20041227

REACTIONS (4)
  - BLOOD FIBRINOGEN INCREASED [None]
  - BULLOUS IMPETIGO [None]
  - HYPOCHROMIC ANAEMIA [None]
  - OSTEOMYELITIS [None]
